FAERS Safety Report 4820020-2 (Version None)
Quarter: 2005Q4

REPORT INFORMATION
  Report Type: 
  Country: None (occurrence: None)
  Receive Date: 20051027
  Receipt Date: 20050414
  Transmission Date: 20060501
  Serious: Yes (Other)
  Sender: FDA-Public Use
  Company Number: HQWYE084418APR05

PATIENT
  Age: 65 Year
  Sex: Female
  Weight: 56.3 kg

DRUGS (3)
  1. PREMARIN [Suspect]
     Indication: HORMONE REPLACEMENT THERAPY
     Dosage: 0.3 MG 1X PER 1 DAY, ORAL
     Route: 048
     Dates: start: 19950501, end: 19980101
  2. UNSPECIFIED ALLERGY MEDICATION (UNSPECIFIED ALLERGY MEDICATION) [Concomitant]
  3. PROVERA [Concomitant]

REACTIONS (1)
  - BREAST CANCER [None]
